FAERS Safety Report 7716729-3 (Version None)
Quarter: 2011Q3

REPORT INFORMATION
  Report Type: 
  Country: None (occurrence: None)
  Receive Date: 20110829
  Receipt Date: 20110323
  Transmission Date: 20111222
  Serious: Yes (Other)
  Sender: FDA-Public Use
  Company Number: US-BAYER-2011-007845

PATIENT
  Age: 21 Year
  Sex: Female
  Weight: 53.061 kg

DRUGS (8)
  1. YAZ [Suspect]
     Indication: CONTRACEPTION
     Dosage: UNK
     Dates: start: 20071001, end: 20080301
  2. IBUPROFEN [Concomitant]
     Dosage: UNK
     Dates: start: 20060926
  3. SERTRALINE HYDROCHLORIDE [Concomitant]
  4. PRILOSEC [Concomitant]
  5. YAZ [Suspect]
     Indication: ACNE
  6. XANAX [Concomitant]
  7. PROZAC [Concomitant]
     Indication: DEPRESSION
     Dosage: UNK
     Dates: start: 20071001, end: 20071201
  8. AMOXICILLIN [Concomitant]

REACTIONS (10)
  - FEAR [None]
  - CHOLECYSTITIS CHRONIC [None]
  - PAIN [None]
  - VOMITING [None]
  - CHEST PAIN [None]
  - CHOLECYSTECTOMY [None]
  - NERVOUSNESS [None]
  - CHOLELITHIASIS [None]
  - DEPRESSION [None]
  - EMOTIONAL DISTRESS [None]
